FAERS Safety Report 17656937 (Version 1)
Quarter: 2020Q2

REPORT INFORMATION
  Report Type: Spontaneous
  Country: BR (occurrence: BR)
  Receive Date: 20200410
  Receipt Date: 20200410
  Transmission Date: 20200713
  Serious: Yes (Other)
  Sender: FDA-Public Use
  Company Number: BR-ASTRAZENECA-2020SE49418

PATIENT
  Sex: Female

DRUGS (2)
  1. OLAPARIBE [Suspect]
     Active Substance: OLAPARIB
     Route: 048
  2. OLAPARIBE [Suspect]
     Active Substance: OLAPARIB
     Route: 048

REACTIONS (2)
  - Drug intolerance [Unknown]
  - Malignant neoplasm progression [Unknown]
